FAERS Safety Report 10583579 (Version 3)
Quarter: 2014Q4

REPORT INFORMATION
  Report Type: Spontaneous
  Country: CA (occurrence: None)
  Receive Date: 20141112
  Receipt Date: 20141128
  Transmission Date: 20150529
  Serious: Yes (Disabling, Other)
  Sender: FDA-Public Use
  Company Number: CA-DRAXIINC-000247

PATIENT
  Age: 62 Year
  Sex: Female
  Weight: 83.01 kg

DRUGS (18)
  1. APO-SALVENT (INN: SALBUTAMOL) [Concomitant]
  2. PRO-METFORMIN (INN:METFORMIN) [Concomitant]
  3. DOCUSATE SODIUM (INN: ESTROGENS CONJUGATED [Concomitant]
  4. CITALOPRAM (INN: CLITALOPRAM) [Concomitant]
  5. ACETAMINOPHEN (INN: PARACETAMOL) [Concomitant]
  6. JAMP CYCLOBENZAPRINE) [Concomitant]
  7. TYLENOL (INN: PARACETAMOL) [Concomitant]
  8. CA1500 (INN:CALCIUM GLUCEPTATE) [Concomitant]
  9. NAPROXEN (INN: NAPROXEN) [Concomitant]
  10. PREMARIN (INN: ESTROGEN CONJUGATED [Concomitant]
  11. PREDNISONE (INN:PREDNISONE0 [Concomitant]
  12. CLOTRIMADERM (INN: CLOTRIMAZOLE) [Concomitant]
  13. PRO TOPIRAMATE (INN: TOPIRAMATE) [Concomitant]
  14. JAMP VITAMIN D (VIT) (INN: VITAMIN D NOS) [Concomitant]
  15. DRAXIMAGE MDP-25 [Suspect]
     Active Substance: TECHNETIUM TC-99M MEDRONATE
     Indication: BONE SCAN
     Dosage: 1X35.47MCI TOTAL IV (NOS
     Route: 042
     Dates: start: 20141009, end: 20141009
  16. VOLTAREN EMULGEL (INN: DICLOFENAC)- [Concomitant]
  17. JAMP FERROUS SULFATE (INN: FERROUSM SULFATE), [Concomitant]
  18. HYDERM (INN: HYDROCORTISONE) [Concomitant]

REACTIONS (3)
  - Transient ischaemic attack [None]
  - Tremor [None]
  - Fibromyalgia [None]

NARRATIVE: CASE EVENT DATE: 20141009
